FAERS Safety Report 10253630 (Version 3)
Quarter: 2014Q3

REPORT INFORMATION
  Report Type: Report from Study
  Country: AU (occurrence: AU)
  Receive Date: 20140623
  Receipt Date: 20140825
  Transmission Date: 20150326
  Serious: Yes (Hospitalization, Disabling, Other)
  Sender: FDA-Public Use
  Company Number: PHHY2014AU076890

PATIENT
  Age: 77 Year
  Sex: Female

DRUGS (2)
  1. METHOTREXATE [Concomitant]
     Active Substance: METHOTREXATE
     Dosage: UNK
  2. ACLASTA [Suspect]
     Active Substance: ZOLEDRONIC ACID
     Dosage: 5 MG, UNK
     Route: 042

REACTIONS (7)
  - Pelvic fracture [Unknown]
  - Lymphocyte count decreased [Not Recovered/Not Resolved]
  - Glomerular filtration rate decreased [Unknown]
  - Blood sodium decreased [Unknown]
  - Neutrophil count increased [Recovered/Resolved]
  - Gamma-glutamyltransferase increased [Unknown]
  - Hip fracture [Unknown]

NARRATIVE: CASE EVENT DATE: 20100507
